FAERS Safety Report 6925539-6 (Version None)
Quarter: 2010Q3

REPORT INFORMATION
  Report Type: 
  Country: None (occurrence: None)
  Receive Date: 20100816
  Receipt Date: 20100804
  Transmission Date: 20110219
  Serious: Yes (Hospitalization)
  Sender: FDA-Public Use
  Company Number: US-CELGENEUS-163-22393-10080373

PATIENT
  Sex: Female

DRUGS (1)
  1. ISTODAX [Suspect]
     Route: 051

REACTIONS (1)
  - MYOCARDIAL INFARCTION [None]
